FAERS Safety Report 6813258-6 (Version None)
Quarter: 2010Q3

REPORT INFORMATION
  Report Type: 
  Country: None (occurrence: None)
  Receive Date: 20100701
  Receipt Date: 20100620
  Transmission Date: 20110219
  Serious: Yes (Other)
  Sender: FDA-Public Use
  Company Number: US-PFIZER INC-2008077887

PATIENT
  Sex: Female
  Weight: 58.05 kg

DRUGS (24)
  1. CHANTIX [Suspect]
     Indication: SMOKING CESSATION THERAPY
     Dosage: UNK MG, 2X/DAY
     Route: 048
     Dates: start: 20080101
  2. CHANTIX [Suspect]
     Dosage: 1 MG, 2X/DAY
     Route: 048
     Dates: start: 20100601
  3. CYMBALTA [Suspect]
     Indication: DEPRESSION
  4. FLONASE [Concomitant]
     Indication: HYPERSENSITIVITY
     Route: 045
  5. KLONOPIN [Concomitant]
  6. REMERON [Concomitant]
     Indication: DEPRESSION
     Dosage: 30 MG, 1X/DAY
     Route: 048
  7. LEVOTHYROXINE SODIUM [Concomitant]
  8. VYTORIN [Concomitant]
  9. MONTELUKAST SODIUM [Concomitant]
  10. FOSAMAX [Concomitant]
     Indication: OSTEOPENIA
     Dosage: 25 MG, 1X/DAY
     Route: 048
  11. ALBUTEROL [Concomitant]
     Indication: EMPHYSEMA
     Dosage: UNK
     Route: 055
  12. ADVAIR DISKUS 100/50 [Concomitant]
     Indication: EMPHYSEMA
     Dosage: UNK
     Route: 055
  13. ADVAIR DISKUS 100/50 [Concomitant]
     Indication: ASTHMA
  14. RIZATRIPTAN BENZOATE [Concomitant]
  15. PRILOSEC [Concomitant]
  16. ATROVENT [Concomitant]
     Indication: EMPHYSEMA
     Dosage: UNK
     Route: 055
  17. CALCIUM CARBONATE [Concomitant]
  18. LYRICA [Concomitant]
     Indication: NEURALGIA
     Dosage: 150 MG, 2X/DAY
     Route: 048
  19. LISINOPRIL [Concomitant]
     Indication: HYPERTENSION
     Dosage: 10 MG, 1X/DAY
     Route: 048
  20. AMLODIPINE [Concomitant]
     Indication: HYPERTENSION
     Dosage: 5 MG, 1X/DAY
     Route: 048
  21. LEVOTHYROXINE SODIUM [Concomitant]
     Indication: THYROID DISORDER
     Dosage: 100 UG, 1X/DAY
     Route: 048
  22. LOVASTATIN [Concomitant]
     Indication: BLOOD CHOLESTEROL INCREASED
     Dosage: 10 MG, 1X/DAY
     Route: 048
  23. RANITIDINE [Concomitant]
     Indication: GASTROOESOPHAGEAL REFLUX DISEASE
     Dosage: 150 MG, 2X/DAY
     Route: 048
  24. DARVOCET [Concomitant]
     Indication: INTERVERTEBRAL DISC DEGENERATION
     Dosage: 100/50
     Route: 048

REACTIONS (4)
  - AGITATION [None]
  - DYSPNOEA [None]
  - NERVOUSNESS [None]
  - SEROTONIN SYNDROME [None]
